FAERS Safety Report 13005343 (Version 2)
Quarter: 2017Q1

REPORT INFORMATION
  Report Type: Spontaneous
  Country: GB (occurrence: GB)
  Receive Date: 20161207
  Receipt Date: 20170214
  Transmission Date: 20170428
  Serious: Yes (Other)
  Sender: FDA-Public Use
  Company Number: GB-SUN PHARMACEUTICAL INDUSTRIES LTD-2016RR-128547

PATIENT
  Age: 71 Year
  Sex: Male

DRUGS (10)
  1. EZETIMIBE. [Concomitant]
     Active Substance: EZETIMIBE
     Indication: CARDIAC DISORDER
     Dosage: 10 MG, BID
     Route: 048
  2. PAZOPANIB [Suspect]
     Active Substance: PAZOPANIB
     Indication: PRODUCT USED FOR UNKNOWN INDICATION
     Dosage: 800 MG, QD
     Route: 048
     Dates: start: 20160708
  3. ASPIRIN. [Concomitant]
     Active Substance: ASPIRIN
     Indication: PRODUCT USED FOR UNKNOWN INDICATION
     Dosage: 75 MG, QD
     Route: 048
  4. BICALUTAMIDE. [Concomitant]
     Active Substance: BICALUTAMIDE
     Indication: PROSTATE CANCER
     Dosage: 50 MG, QD
     Route: 048
  5. RAMIPRIL. [Concomitant]
     Active Substance: RAMIPRIL
     Indication: PRODUCT USED FOR UNKNOWN INDICATION
     Dosage: 10 MG, UNK
     Route: 048
  6. AMLODIPINE [Concomitant]
     Active Substance: AMLODIPINE BESYLATE
     Indication: PRODUCT USED FOR UNKNOWN INDICATION
     Dosage: 5 MG, QD
     Route: 065
  7. LUPRON DEPOT [Concomitant]
     Active Substance: LEUPROLIDE ACETATE
     Indication: PRODUCT USED FOR UNKNOWN INDICATION
     Dosage: 3 DF, QMO
     Route: 065
  8. BISOPROLOL [Concomitant]
     Active Substance: BISOPROLOL
     Indication: CARDIAC DISORDER
     Dosage: UNK MG, UNK
     Route: 048
  9. SIMVASTATIN. [Suspect]
     Active Substance: SIMVASTATIN
     Indication: CARDIAC DISORDER
     Dosage: 20 MG, QD
     Route: 048
  10. PAZOPANIB [Suspect]
     Active Substance: PAZOPANIB
     Indication: RENAL CELL CARCINOMA
     Dosage: 800 MG, QD
     Route: 048

REACTIONS (10)
  - Alanine aminotransferase increased [Unknown]
  - Platelet count decreased [Unknown]
  - Jaundice [Recovered/Resolved]
  - Drug interaction [Unknown]
  - Abdominal discomfort [Unknown]
  - Chromaturia [Unknown]
  - Scleral discolouration [Recovered/Resolved]
  - Eye colour change [Unknown]
  - Faeces pale [Unknown]
  - Blood bilirubin increased [Unknown]

NARRATIVE: CASE EVENT DATE: 20160609
